FAERS Safety Report 5117779-6 (Version None)
Quarter: 2006Q3

REPORT INFORMATION
  Report Type: 
  Country: None (occurrence: None)
  Receive Date: 20060929
  Receipt Date: 20060919
  Transmission Date: 20061208
  Serious: Yes (Other)
  Sender: FDA-Public Use
  Company Number: CA-GILEAD-2006-0010242

PATIENT
  Sex: Male

DRUGS (7)
  1. TRUVADA [Suspect]
     Indication: HIV INFECTION
     Route: 048
     Dates: start: 20060808
  2. ATAZANIVR [Concomitant]
     Indication: HIV INFECTION
     Route: 048
     Dates: start: 20060609
  3. RITONAVIR [Concomitant]
     Indication: HIV INFECTION
     Route: 048
     Dates: start: 20060609
  4. SEPTRA [Concomitant]
     Indication: ANTIBIOTIC PROPHYLAXIS
     Route: 048
     Dates: start: 20060501
  5. VENLAFLAXINE [Concomitant]
     Indication: DEPRESSION
     Route: 048
     Dates: start: 20010101
  6. LORAZEPAM [Concomitant]
     Indication: ANXIETY
     Route: 048
     Dates: start: 20010101
  7. SILDENAFIL [Concomitant]
     Indication: ERECTILE DYSFUNCTION
     Route: 048
     Dates: start: 20060701

REACTIONS (1)
  - HENOCH-SCHONLEIN PURPURA [None]
